FAERS Safety Report 8575833-0 (Version None)
Quarter: 2012Q3

REPORT INFORMATION
  Report Type: 
  Country: None (occurrence: None)
  Receive Date: 20120807
  Receipt Date: 20120724
  Transmission Date: 20120928
  Serious: Yes (Death)
  Sender: FDA-Public Use
  Company Number: US-SANOFI-AVENTIS-2012SA014000

PATIENT
  Age: 56 Year
  Sex: Male
  Weight: 76 kg

DRUGS (7)
  1. LEXAPRO [Concomitant]
     Indication: DEPRESSION
     Route: 065
  2. XANAX [Concomitant]
     Indication: ANXIETY
     Route: 065
     Dates: start: 20100203
  3. ASPIRIN [Concomitant]
  4. AMBIEN [Suspect]
     Route: 048
     Dates: start: 20100304
  5. VITAMIN TAB [Concomitant]
  6. AMBIEN [Suspect]
     Route: 048
     Dates: start: 20060402
  7. IBUPROFEN [Concomitant]

REACTIONS (6)
  - AGITATION [None]
  - ANXIETY [None]
  - COMPLETED SUICIDE [None]
  - STRESS [None]
  - VERBAL ABUSE [None]
  - INSOMNIA [None]
